FAERS Safety Report 4638832-7 (Version None)
Quarter: 2005Q2

REPORT INFORMATION
  Report Type: 
  Country: None (occurrence: None)
  Receive Date: 20050418
  Receipt Date: 20050418
  Transmission Date: 20051028
  Serious: Yes (Life-Threatening, Hospitalization)
  Sender: FDA-Public Use
  Company Number: None

PATIENT
  Age: 15 Year
  Sex: Female
  Weight: 64 kg

DRUGS (2)
  1. SEPTRA [Suspect]
     Indication: ACNE
     Dosage: ORAL
     Route: 048
     Dates: start: 20050323, end: 20050402
  2. LEVAQUIN [Suspect]
     Indication: URINARY TRACT INFECTION
     Dates: start: 20050402, end: 20050402

REACTIONS (4)
  - ERYTHEMA MULTIFORME [None]
  - EYE SWELLING [None]
  - STEVENS-JOHNSON SYNDROME [None]
  - SWELLING FACE [None]
